FAERS Safety Report 5478685-0 (Version None)
Quarter: 2007Q4

REPORT INFORMATION
  Report Type: 
  Country: None (occurrence: None)
  Receive Date: 20071005
  Receipt Date: 20070925
  Transmission Date: 20080405
  Serious: Yes (Life-Threatening, Other)
  Sender: FDA-Public Use
  Company Number: JP-PFIZER INC-2007028800

PATIENT
  Sex: Female
  Weight: 41 kg

DRUGS (10)
  1. CABERGOLINE [Suspect]
     Indication: PARKINSON'S DISEASE
     Dosage: DAILY DOSE:4MG
     Route: 048
     Dates: start: 19990101, end: 20060801
  2. PERMAX [Suspect]
     Indication: PARKINSON'S DISEASE
     Dosage: DAILY DOSE:1750MG
     Route: 048
     Dates: start: 19990101, end: 20060801
  3. PERGOLIDE MESYLATE [Concomitant]
     Route: 048
  4. MADOPAR [Concomitant]
     Indication: PARKINSON'S DISEASE
     Dosage: DAILY DOSE:600MG
     Route: 048
  5. ARTANE [Concomitant]
     Route: 048
  6. ADALAT [Concomitant]
     Route: 048
  7. RYTHMODAN [Concomitant]
     Route: 048
  8. LASIX [Concomitant]
     Route: 048
  9. GASMOTIN [Concomitant]
     Route: 048
  10. SENNOSIDES [Concomitant]
     Route: 048

REACTIONS (5)
  - AORTIC STENOSIS [None]
  - AORTIC VALVE INCOMPETENCE [None]
  - CARDIAC FAILURE CONGESTIVE [None]
  - HEART VALVE CALCIFICATION [None]
  - MITRAL VALVE INCOMPETENCE [None]
